FAERS Safety Report 23548896 (Version 1)
Quarter: 2024Q1

REPORT INFORMATION
  Report Type: Report from Study
  Country: US (occurrence: US)
  Receive Date: 20240221
  Receipt Date: 20240221
  Transmission Date: 20240410
  Serious: Yes (Other)
  Sender: FDA-Public Use
  Company Number: US-KAMADA LIMITED-2020US005124

PATIENT
  Age: 61 Year
  Sex: Female

DRUGS (6)
  1. GLASSIA [Suspect]
     Active Substance: .ALPHA.1-PROTEINASE INHIBITOR HUMAN
     Indication: Alpha-1 antitrypsin deficiency
     Dosage: 4800 MILLIGRAM, 1/WEEK
     Route: 042
  2. GLASSIA [Suspect]
     Active Substance: .ALPHA.1-PROTEINASE INHIBITOR HUMAN
     Indication: Alpha-1 antitrypsin deficiency
     Dosage: 4800 MILLIGRAM, 1/WEEK
     Route: 042
  3. GLASSIA [Suspect]
     Active Substance: .ALPHA.1-PROTEINASE INHIBITOR HUMAN
     Dosage: UNK, 1/WEEK
     Route: 065
  4. GLASSIA [Suspect]
     Active Substance: .ALPHA.1-PROTEINASE INHIBITOR HUMAN
     Dosage: UNK, 1/WEEK
     Route: 065
  5. LOSARTAN [Concomitant]
     Active Substance: LOSARTAN
     Indication: Hypertension
     Dosage: UNK
     Route: 065
  6. FETZIMA [Concomitant]
     Active Substance: LEVOMILNACIPRAN HYDROCHLORIDE
     Indication: Depression
     Dosage: UNK
     Route: 065

REACTIONS (14)
  - Thrombosis [Unknown]
  - Medical device site thrombosis [Unknown]
  - Embolism [Unknown]
  - Poor venous access [Unknown]
  - Insurance issue [Unknown]
  - Medical device site discomfort [Unknown]
  - Oropharyngeal pain [Unknown]
  - Vision blurred [Unknown]
  - Photopsia [Unknown]
  - Middle ear effusion [Unknown]
  - Medical device site pain [Not Recovered/Not Resolved]
  - Headache [Unknown]
  - Product use issue [Unknown]
  - Device placement issue [Unknown]

NARRATIVE: CASE EVENT DATE: 20200902
